FAERS Safety Report 21897235 (Version 5)
Quarter: 2024Q1

REPORT INFORMATION
  Report Type: Report from Study
  Country: PE (occurrence: PE)
  Receive Date: 20230123
  Receipt Date: 20240306
  Transmission Date: 20240409
  Serious: Yes (Other)
  Sender: FDA-Public Use
  Company Number: PE-002147023-NVSC2023PE013848

PATIENT
  Age: 59 Year
  Sex: Male
  Weight: 90 kg

DRUGS (5)
  1. COSENTYX [Suspect]
     Active Substance: SECUKINUMAB
     Indication: Psoriatic arthropathy
     Dosage: 300 MG, QW,  WEEKLY TREATMENT FOR 5 WEEKS (IMPREGNATION)
     Route: 058
     Dates: start: 202211
  2. COSENTYX [Suspect]
     Active Substance: SECUKINUMAB
     Dosage: 300 MG, QW ( TWO DOSES OF 150MG  WITH WEEKLY APPLICATION FOR 5 WEEKS)
     Route: 058
     Dates: start: 202212
  3. COSENTYX [Suspect]
     Active Substance: SECUKINUMAB
     Dosage: UNK
     Route: 065
     Dates: start: 20230121
  4. COSENTYX [Suspect]
     Active Substance: SECUKINUMAB
     Dosage: 150 MG, Q2W (ONCE EVERY 2 WEEKS/EVERY 15 DAYS)
     Route: 058
  5. COSENTYX [Suspect]
     Active Substance: SECUKINUMAB
     Dosage: 300 MG, Q2W
     Route: 058
     Dates: start: 20240113

REACTIONS (8)
  - Diabetes mellitus [Unknown]
  - Gait disturbance [Unknown]
  - Anxiety [Unknown]
  - Pain [Unknown]
  - Peripheral swelling [Unknown]
  - Product availability issue [Unknown]
  - Product use issue [Unknown]
  - Off label use [Unknown]

NARRATIVE: CASE EVENT DATE: 20230101
